FAERS Safety Report 4499201-6 (Version None)
Quarter: 2004Q4

REPORT INFORMATION
  Report Type: 
  Country: None (occurrence: None)
  Receive Date: 20041111
  Receipt Date: 20041026
  Transmission Date: 20050328
  Serious: Yes (Hospitalization)
  Sender: FDA-Public Use
  Company Number: 99

PATIENT
  Age: 59 Year
  Sex: Male

DRUGS (12)
  1. MELPHALAN [Suspect]
     Indication: MULTIPLE MYELOMA
     Dosage: 200MGM2 TWICE PER DAY
     Route: 042
     Dates: start: 20040831
  2. THALIDOMIDE [Suspect]
     Indication: MULTIPLE MYELOMA
     Route: 048
     Dates: start: 20040724
  3. DEXAMETHASONE [Suspect]
     Indication: MULTIPLE MYELOMA
     Route: 048
     Dates: start: 20040828
  4. ACYCLOVIR [Concomitant]
  5. EPOGEN [Concomitant]
  6. ZANTAC [Concomitant]
  7. LISINOPRIL [Concomitant]
  8. MAGNESIUM OXIDE [Concomitant]
  9. CALCIUM CARBONATE [Concomitant]
  10. REGLAN [Concomitant]
  11. IMODIUM [Concomitant]
  12. FOLIC ACID [Concomitant]

REACTIONS (7)
  - ANAEMIA [None]
  - CATHETER RELATED COMPLICATION [None]
  - LUNG INFILTRATION [None]
  - PNEUMONIA [None]
  - PO2 DECREASED [None]
  - PULMONARY EMBOLISM [None]
  - PYREXIA [None]
